FAERS Safety Report 6690905-3 (Version None)
Quarter: 2010Q2

REPORT INFORMATION
  Report Type: 
  Country: None (occurrence: None)
  Receive Date: 20100421
  Receipt Date: 20100409
  Transmission Date: 20101027
  Serious: Yes (Hospitalization, Other)
  Sender: FDA-Public Use
  Company Number: US-PFIZER INC-2009224889

PATIENT
  Age: 79 Year
  Sex: Male

DRUGS (5)
  1. LINEZOLID [Suspect]
     Indication: PNEUMONIA STAPHYLOCOCCAL
     Dosage: 600 MG, 2X/DAY
     Route: 042
  2. GEMFIBROZIL [Concomitant]
     Indication: HYPERLIPIDAEMIA
     Dosage: 600 MG, 2X/DAY
  3. LOVASTATIN [Concomitant]
     Indication: HYPERLIPIDAEMIA
     Dosage: 40 MG, 1X/DAY
  4. VANCOMYCIN [Concomitant]
     Dosage: 1 G, UNK
     Route: 042
  5. LEVOFLOXACIN [Concomitant]
     Dosage: 500 MG, UNK
     Route: 042

REACTIONS (1)
  - BLOOD CREATINE PHOSPHOKINASE ABNORMAL [None]
